FAERS Safety Report 7622505-2 (Version None)
Quarter: 2011Q3

REPORT INFORMATION
  Report Type: 
  Country: None (occurrence: None)
  Receive Date: 20110712
  Receipt Date: 20110706
  Transmission Date: 20111222
  Serious: Yes (Other)
  Sender: FDA-Public Use
  Company Number: 2011SP031388

PATIENT
  Age: 1 Year
  Sex: Female

DRUGS (1)
  1. ORGARAN [Suspect]
     Indication: DISSEMINATED INTRAVASCULAR COAGULATION

REACTIONS (1)
  - TRANSAMINASES INCREASED [None]
